FAERS Safety Report 6218756-4 (Version None)
Quarter: 2009Q2

REPORT INFORMATION
  Report Type: 
  Country: None (occurrence: None)
  Receive Date: 20090608
  Receipt Date: 20090526
  Transmission Date: 20091009
  Serious: Yes (Death)
  Sender: FDA-Public Use
  Company Number: GB-AVENTIS-200915001GDDC

PATIENT
  Age: 82 Year
  Sex: Male

DRUGS (28)
  1. GENTAMYCIN SULFATE [Suspect]
     Indication: CATHETER PLACEMENT
     Route: 030
     Dates: start: 20050628, end: 20050628
  2. FUROSEMIDE [Suspect]
     Route: 048
     Dates: start: 20050628, end: 20050630
  3. FUROSEMIDE [Suspect]
     Route: 042
     Dates: start: 20050703, end: 20050703
  4. FUROSEMIDE [Suspect]
     Route: 042
     Dates: start: 20050705, end: 20050705
  5. FUROSEMIDE [Suspect]
     Route: 042
     Dates: start: 20050708, end: 20050708
  6. CIPROFLOXACIN [Suspect]
     Indication: PNEUMONIA
     Route: 048
     Dates: start: 20050628, end: 20050630
  7. CIPROFLOXACIN [Suspect]
     Route: 042
     Dates: start: 20050630, end: 20050702
  8. OMEPRAZOLE [Concomitant]
     Route: 048
     Dates: start: 20050628, end: 20050701
  9. DOTHIEPIN HYDROCHLORIDE [Concomitant]
     Route: 048
     Dates: start: 20050628, end: 20050629
  10. MST                                /00036302/ [Concomitant]
     Route: 048
     Dates: start: 20050628, end: 20050629
  11. MST                                /00036302/ [Concomitant]
     Route: 058
     Dates: start: 20050708
  12. COLACE [Concomitant]
     Route: 048
     Dates: start: 20050628, end: 20050628
  13. TERBUTALINE SULFATE [Concomitant]
     Dosage: DOSE: 2 PUFFS
     Route: 055
     Dates: start: 20050628, end: 20050705
  14. CALCICHEW D3 [Concomitant]
     Dosage: DOSE QUANTITY: 2
     Route: 048
     Dates: start: 20050628, end: 20050628
  15. WARFARIN [Concomitant]
     Route: 048
     Dates: start: 20050628, end: 20050628
  16. DALTEPARIN SODIUM [Concomitant]
     Route: 058
     Dates: start: 20050629, end: 20050629
  17. DALTEPARIN SODIUM [Concomitant]
     Route: 058
     Dates: start: 20050705, end: 20050706
  18. CEFTRIAXONE [Concomitant]
     Route: 042
     Dates: start: 20050701, end: 20050704
  19. METRONIDAZOLE [Concomitant]
     Route: 042
     Dates: start: 20050701, end: 20050704
  20. METRONIDAZOLE [Concomitant]
     Route: 048
     Dates: start: 20050705, end: 20050706
  21. METRONIDAZOLE [Concomitant]
     Route: 042
     Dates: start: 20050708, end: 20050709
  22. HALOPERIDOL [Concomitant]
     Route: 030
     Dates: start: 20050630, end: 20050701
  23. HYOSCINE HBR HYT [Concomitant]
     Route: 058
     Dates: start: 20050630, end: 20050710
  24. IPRATROPIUM BROMIDE [Concomitant]
     Route: 055
     Dates: start: 20050705
  25. ALBUTEROL [Concomitant]
     Route: 055
     Dates: start: 20050705
  26. SODIUM BICARBONATE [Concomitant]
     Route: 048
     Dates: start: 20050708
  27. SANDO K                            /00031402/ [Concomitant]
     Dosage: DOSE QUANTITY: 2
     Route: 048
     Dates: start: 20050708, end: 20050709
  28. MIDAZOLAM HCL [Concomitant]
     Route: 058
     Dates: start: 20050708

REACTIONS (1)
  - RENAL FAILURE [None]
